FAERS Safety Report 5169090-5 (Version None)
Quarter: 2006Q4

REPORT INFORMATION
  Report Type: 
  Country: None (occurrence: None)
  Receive Date: 20061211
  Receipt Date: 20061201
  Transmission Date: 20070319
  Serious: Yes (Hospitalization)
  Sender: FDA-Public Use
  Company Number: US-JNJFOC-20061201201

PATIENT
  Sex: Female

DRUGS (12)
  1. INFLIXIMAB [Suspect]
     Indication: RHEUMATOID ARTHRITIS
     Route: 042
  2. LISINOPRIL [Concomitant]
  3. ARAVA [Concomitant]
  4. POTASSIUM ACETATE [Concomitant]
  5. DILTIAZEM HCL [Concomitant]
  6. ZOCOR [Concomitant]
  7. PLAVIX [Concomitant]
  8. TRAMADOL HCL [Concomitant]
  9. CELEBREX [Concomitant]
  10. ACTONEL [Concomitant]
  11. PREVACID [Concomitant]
  12. VITAMIN D [Concomitant]

REACTIONS (3)
  - ARRHYTHMIA [None]
  - CHEST PAIN [None]
  - CORONARY ARTERY DISEASE [None]
